FAERS Safety Report 10373951 (Version 1)
Quarter: 2014Q1

REPORT INFORMATION
  Report Type: Spontaneous
  Country: US (occurrence: None)
  Receive Date: 20140306
  Receipt Date: 20140306
  Transmission Date: 20141002
  Serious: Yes (Hospitalization)
  Sender: FDA-Public Use
  Company Number: 163-21880-13014288

PATIENT
  Age: 89 Year
  Sex: Female

DRUGS (12)
  1. REVLIMID (LENALIDOMIDE) (25 MILLIGRAM, CAPSULES) [Suspect]
     Indication: PLASMA CELL MYELOMA
     Dosage: 25 MG, 21 IN 21 D, PO
     Route: 048
     Dates: start: 20121130, end: 20130104
  2. ANTIHYPERTENSIVE MEDICATION (ANTIHYPERTENSIVES) (UNKNOWN) [Concomitant]
  3. DIURETICS (DIURETICS) (UNKNOWN) [Concomitant]
  4. FUROSEMIDE (FUROSEMIDE) (40 MILLIGRAM, TABLETS) [Concomitant]
  5. POTASSIUM (POTASSIUM) (UNKNOWN) [Concomitant]
  6. DILTIAZEM CD (DILTIAZEM HYDROCHLORIDE) (240 MILLIGRAM, CAPSULES) [Concomitant]
  7. WARFARIN (WARFARIN) (UNKNOWN) [Concomitant]
  8. LISINOPRIL (LISINOPRIL) (10 MILLIGRAM, TABLETS) [Concomitant]
  9. MULTAQ (DRONEDARONE HYDROCHLORIDE) (400 MILLIGRAM, TABLETS) [Concomitant]
  10. METOPROLOL TARTRATE (METOPROLOL TARTRATE) (50 MILLIGRAM, TABLETS) [Concomitant]
  11. HYDROCODONE/ACETAMINOPHEN (REMEDINE) (UNKNOWN) [Concomitant]
  12. DEXAMETHASONE (DEXAMETHASONE) (4 MILLIGRAM, TABLETS) [Concomitant]

REACTIONS (1)
  - Renal failure acute [None]
